FAERS Safety Report 10143409 (Version 1)
Quarter: 2014Q2

REPORT INFORMATION
  Report Type: Spontaneous
  Country: US (occurrence: US)
  Receive Date: 20140430
  Receipt Date: 20140430
  Transmission Date: 20141212
  Serious: No
  Sender: FDA-Public Use
  Company Number: US-JNJFOC-20140412828

PATIENT
  Age: 46 Year
  Sex: Female
  Weight: 44 kg

DRUGS (5)
  1. SANDOZ FENTANYL TRANSDERMAL SYSTEM [Suspect]
     Indication: PAIN
     Route: 062
     Dates: start: 201403
  2. SANDOZ FENTANYL TRANSDERMAL SYSTEM [Suspect]
     Indication: OSTEOGENESIS IMPERFECTA
     Route: 062
     Dates: start: 201403
  3. PAXIL [Concomitant]
     Indication: DEPRESSION
     Route: 048
     Dates: start: 1996
  4. PAXIL [Concomitant]
     Indication: PANIC DISORDER
     Route: 048
     Dates: start: 1996
  5. PAXIL [Concomitant]
     Indication: ANXIETY
     Route: 048
     Dates: start: 1996

REACTIONS (6)
  - Incorrect drug administration duration [Recovered/Resolved]
  - Fatigue [Unknown]
  - Pain [Unknown]
  - Drug ineffective [Not Recovered/Not Resolved]
  - Product adhesion issue [Not Recovered/Not Resolved]
  - Wrong technique in drug usage process [Not Recovered/Not Resolved]
